FAERS Safety Report 9557403 (Version 3)
Quarter: 2013Q4

REPORT INFORMATION
  Report Type: Spontaneous
  Country: IT (occurrence: None)
  Receive Date: 20130924
  Receipt Date: 20131206
  Transmission Date: 20140711
  Serious: Yes (Hospitalization)
  Sender: FDA-Public Use
  Company Number: 2013AP008154

PATIENT
  Age: 52 Year
  Sex: Female

DRUGS (3)
  1. QUETIAPINE FUMARATE [Suspect]
     Indication: DEPRESSION
     Dosage: TOTAL
     Route: 048
     Dates: start: 20130623, end: 20130623
  2. CITALOPRAM [Suspect]
     Indication: DEPRESSION
     Dosage: TOTAL
     Route: 048
     Dates: start: 20130623, end: 20130623
  3. DIAZEPAM [Suspect]
     Indication: DEPRESSION
     Dosage: OR_DRPSOL; TOTAL
     Route: 048
     Dates: start: 20130623, end: 20130623

REACTIONS (13)
  - Loss of consciousness [None]
  - Suicide attempt [None]
  - Sopor [None]
  - Intentional overdose [None]
  - Drug abuse [None]
  - Blood creatine phosphokinase increased [None]
  - Blood lactate dehydrogenase increased [None]
  - Red blood cell count decreased [None]
  - Haematocrit decreased [None]
  - Haemoglobin decreased [None]
  - Intentional overdose [None]
  - Insomnia [None]
  - Suicidal ideation [None]
